FAERS Safety Report 6007322-1 (Version None)
Quarter: 2008Q4

REPORT INFORMATION
  Report Type: 
  Country: None (occurrence: None)
  Receive Date: 20081217
  Receipt Date: 20080306
  Transmission Date: 20090506
  Serious: No
  Sender: FDA-Public Use
  Company Number: US-ASTRAZENECA-2008UW04730

PATIENT
  Age: 52 Year
  Sex: Male
  Weight: 99.8 kg

DRUGS (5)
  1. CRESTOR [Suspect]
     Indication: BLOOD CHOLESTEROL INCREASED
     Route: 048
     Dates: start: 20080131
  2. HYDROCHLOROTHIAZIDE [Concomitant]
  3. SYNTHROID [Concomitant]
  4. INFERON [Concomitant]
     Dates: start: 20080205
  5. RIBAVIRIN [Concomitant]
     Dates: start: 20080205

REACTIONS (4)
  - LIP DISORDER [None]
  - LIP SWELLING [None]
  - RASH PRURITIC [None]
  - URTICARIA [None]
